FAERS Safety Report 8510448-1 (Version None)
Quarter: 2012Q3

REPORT INFORMATION
  Report Type: 
  Country: None (occurrence: None)
  Receive Date: 20120715
  Receipt Date: 20120704
  Transmission Date: 20120928
  Serious: Yes (Death, Life-Threatening, Hospitalization)
  Sender: FDA-Public Use
  Company Number: JP-SANOFI-AVENTIS-2012SA041463

PATIENT
  Age: 81 Year
  Sex: Male

DRUGS (20)
  1. ESTRACYT [Interacting]
     Indication: HORMONE THERAPY
     Route: 065
     Dates: start: 20090601, end: 20110801
  2. GASMOTIN [Concomitant]
     Dosage: STRENGTH: 5 MG
     Route: 048
     Dates: end: 20120530
  3. FLUTAMIDE [Interacting]
     Indication: HORMONE THERAPY
     Dosage: DOSE- 3 CAPSULES DIVIDED IN THREE DOSS
     Route: 065
     Dates: start: 20051001, end: 20080201
  4. LEUPROLIDE ACETATE [Interacting]
     Indication: HORMONE THERAPY
     Route: 065
     Dates: start: 20031101
  5. ZOLADEX [Interacting]
     Indication: HORMONE THERAPY
     Dosage: ONCE EVERY THREE MOTNTHS
     Route: 065
     Dates: start: 20080701
  6. LASIX [Concomitant]
     Dosage: STRENGTH: 20 MG
     Route: 048
     Dates: end: 20120530
  7. MUCOSTA [Concomitant]
     Dosage: STRENGTH: 100 MG
     Route: 048
     Dates: end: 20120530
  8. PAXIL [Concomitant]
     Route: 048
     Dates: end: 20120530
  9. ZOLADEX [Interacting]
     Route: 058
     Dates: start: 20120314, end: 20120314
  10. ETHINYL ESTRADIOL [Interacting]
     Indication: HORMONE THERAPY
     Route: 065
     Dates: start: 20110801, end: 20120301
  11. ALLEGRA [Concomitant]
     Dosage: STRENGTH: 60 MG
     Route: 048
     Dates: end: 20120530
  12. TAXOTERE [Suspect]
     Route: 042
     Dates: start: 20120405
  13. TAXOTERE [Interacting]
     Route: 042
     Dates: start: 20120420
  14. DEXAMETHASONE [Concomitant]
     Indication: PROSTATE CANCER
     Dosage: STRENGTH: 0.5 MG
     Route: 048
     Dates: end: 20120530
  15. FAMOTIDINE [Concomitant]
     Dosage: STRENGTH: 20 MG
     Route: 048
     Dates: end: 20120530
  16. TAMSULOSIN HYDROCHLORIDE [Concomitant]
     Dosage: STRENGTH: 0.2 MG
     Route: 048
     Dates: end: 20120530
  17. TAXOTERE [Interacting]
     Route: 042
     Dates: start: 20120517
  18. CASODEX [Interacting]
     Indication: HORMONE THERAPY
     Route: 065
     Dates: start: 20031101, end: 20050901
  19. PROSTAL [Interacting]
     Indication: HORMONE THERAPY
     Route: 065
     Dates: start: 20090401, end: 20090601
  20. BACTERIA NOS [Concomitant]
     Route: 048
     Dates: end: 20120530

REACTIONS (4)
  - INTERSTITIAL LUNG DISEASE [None]
  - PYREXIA [None]
  - DYSPNOEA [None]
  - DRUG INTERACTION [None]
